FAERS Safety Report 6829461-5 (Version None)
Quarter: 2010Q3

REPORT INFORMATION
  Report Type: 
  Country: None (occurrence: None)
  Receive Date: 20100709
  Receipt Date: 20070312
  Transmission Date: 20110219
  Serious: No
  Sender: FDA-Public Use
  Company Number: US-PFIZER INC-2007020040

PATIENT
  Sex: Male
  Weight: 78.02 kg

DRUGS (5)
  1. CHANTIX [Suspect]
     Indication: SMOKING CESSATION THERAPY
     Dates: start: 20070203
  2. ADVAIR DISKUS 100/50 [Concomitant]
  3. LITHIUM CARBONATE [Concomitant]
  4. ALLEGRA [Concomitant]
     Indication: MULTIPLE ALLERGIES
  5. FLONASE [Concomitant]
     Indication: MULTIPLE ALLERGIES

REACTIONS (2)
  - INSOMNIA [None]
  - POOR QUALITY SLEEP [None]
